FAERS Safety Report 9402813 (Version 2)
Quarter: 2013Q4

REPORT INFORMATION
  Report Type: Report from Study
  Country: CA (occurrence: CA)
  Receive Date: 20130716
  Receipt Date: 20131015
  Transmission Date: 20140711
  Serious: Yes (Hospitalization, Other)
  Sender: FDA-Public Use
  Company Number: CA-JNJFOC-20130707414

PATIENT
  Age: 70 Year
  Sex: Male
  Weight: 90 kg

DRUGS (18)
  1. REMICADE [Suspect]
     Indication: RHEUMATOID ARTHRITIS
     Route: 042
     Dates: end: 20130830
  2. REMICADE [Suspect]
     Indication: RHEUMATOID ARTHRITIS
     Route: 042
     Dates: start: 20090831, end: 20130604
  3. RAMIPRIL [Concomitant]
     Route: 048
  4. GLYBURIDE [Concomitant]
     Route: 048
  5. DESYREL [Concomitant]
     Route: 048
  6. PROCAL [Concomitant]
     Route: 048
  7. METHOTREXATE [Concomitant]
     Route: 058
  8. LIPITOR [Concomitant]
     Route: 048
  9. CYCLOBENZAPRINE [Concomitant]
     Dosage: HS (AT BED TIME)
     Route: 048
  10. APO-FOLIC [Concomitant]
     Route: 048
  11. SALAZOPYRIN [Concomitant]
     Route: 048
  12. NAPROXEN [Concomitant]
     Route: 048
  13. AVANDIA [Concomitant]
     Route: 048
  14. FLOMAX [Concomitant]
     Route: 048
  15. CLOTRIMADERM [Concomitant]
     Route: 061
  16. PANTOLOC [Concomitant]
     Route: 048
  17. GEN-NITRO [Concomitant]
     Dosage: AS NEEDED
     Route: 065
  18. PANCRELIPASE [Concomitant]
     Route: 048

REACTIONS (5)
  - Sternal fracture [Recovering/Resolving]
  - Rib fracture [Recovering/Resolving]
  - Spinal fracture [Recovering/Resolving]
  - Fall [Recovering/Resolving]
  - Pain in extremity [Recovering/Resolving]
